FAERS Safety Report 6785193-3 (Version None)
Quarter: 2010Q2

REPORT INFORMATION
  Report Type: 
  Country: None (occurrence: None)
  Receive Date: 20100621
  Receipt Date: 20100621
  Transmission Date: 20101027
  Serious: Yes (Other)
  Sender: FDA-Public Use
  Company Number: None

PATIENT
  Age: 67 Year
  Sex: Female

DRUGS (2)
  1. NEUTROGENA AGE SHIELD FACE SUN BLOCK SPF 55 [Suspect]
     Dosage: 1 TSP EA DAY AS DIRECTED
     Dates: start: 20100508
  2. NEUTROGENA AGE SHIELD FACE SUN BLOCK SPF 55 [Suspect]
     Dosage: 1 TSP EA DAY AS DIRECTED
     Dates: start: 20100509

REACTIONS (4)
  - ERYTHEMA [None]
  - SKIN EXFOLIATION [None]
  - SUNBURN [None]
  - UNEVALUABLE EVENT [None]
